FAERS Safety Report 5565766-6 (Version None)
Quarter: 2007Q4

REPORT INFORMATION
  Report Type: 
  Country: None (occurrence: None)
  Receive Date: 20071218
  Receipt Date: 20070516
  Transmission Date: 20080405
  Serious: Yes (Congenital Anomaly)
  Sender: FDA-Public Use
  Company Number: BE-MERCK-0703BEL00019B1

PATIENT

DRUGS (1)
  1. PROSCAR [Suspect]
     Route: 064
     Dates: start: 20070301, end: 20070301

REACTIONS (1)
  - TRISOMY 21 [None]
